FAERS Safety Report 8918142 (Version 2)
Quarter: 2013Q2

REPORT INFORMATION
  Report Type: Spontaneous
  Country: JP (occurrence: JP)
  Receive Date: 20121120
  Receipt Date: 20130419
  Transmission Date: 20140414
  Serious: Yes (Other)
  Sender: FDA-Public Use
  Company Number: PHHY2012JP105606

PATIENT
  Sex: Female

DRUGS (13)
  1. PACLITAXEL SANDOZ [Suspect]
     Indication: LUNG NEOPLASM MALIGNANT
     Dosage: 150 MG, UNK
     Route: 042
     Dates: start: 20121106, end: 20121106
  2. CARBOPLATIN [Concomitant]
     Indication: LUNG NEOPLASM MALIGNANT
     Dosage: 200 MG, UNK
     Route: 042
     Dates: start: 20121106, end: 20121106
  3. WARFARIN POTASSIUM [Concomitant]
  4. DEXART [Concomitant]
     Dosage: 19.8 MG, UNK
     Route: 042
  5. AMLODIPINE BESILATE [Concomitant]
     Dosage: 5 MG, UNK
     Route: 048
  6. GASTER D [Concomitant]
     Dosage: 20 MG, UNK
     Route: 048
  7. VESICARE [Concomitant]
     Dosage: 5 MG, UNK
     Route: 048
  8. RIZE [Concomitant]
     Dosage: 10 MG
     Route: 048
  9. HYPEN [Concomitant]
     Dosage: 400 MG, UNK
     Route: 048
  10. SENNOSIDE [Concomitant]
     Dosage: 12 MG, UNK
     Route: 048
  11. MAGNESIUM OXIDE [Concomitant]
     Dosage: 2 G
     Route: 048
  12. ALOXI [Concomitant]
     Dosage: 0.75 MG, UNK
     Route: 042
  13. CHLOR-TRIMETON [Concomitant]
     Dosage: 10 MG, UNK
     Route: 042

REACTIONS (1)
  - International normalised ratio increased [Unknown]
